FAERS Safety Report 16457669 (Version 2)
Quarter: 2019Q3

REPORT INFORMATION
  Report Type: Spontaneous
  Country: US (occurrence: US)
  Receive Date: 20190620
  Receipt Date: 20190805
  Transmission Date: 20191004
  Serious: Yes (Hospitalization, Other)
  Sender: FDA-Public Use
  Company Number: US-PFIZER INC-2019263838

PATIENT
  Age: 67 Year
  Sex: Female

DRUGS (4)
  1. LYRICA [Suspect]
     Active Substance: PREGABALIN
     Dosage: 150 MG, 3X/DAY
  2. GABAPENTIN. [Concomitant]
     Active Substance: GABAPENTIN
     Indication: PAIN
     Dosage: 300 MG, UNK
     Dates: start: 20190710
  3. LYRICA [Suspect]
     Active Substance: PREGABALIN
     Dosage: UNK
  4. LYRICA [Suspect]
     Active Substance: PREGABALIN
     Indication: NEURALGIA
     Dosage: 75 MG, 3X/DAY

REACTIONS (11)
  - Peripheral swelling [Unknown]
  - Arthralgia [Unknown]
  - Pain [Unknown]
  - Peripheral swelling [Not Recovered/Not Resolved]
  - Memory impairment [Unknown]
  - Rotator cuff syndrome [Unknown]
  - Muscle atrophy [Unknown]
  - Breakthrough pain [Not Recovered/Not Resolved]
  - Dizziness [Unknown]
  - Drug ineffective [Not Recovered/Not Resolved]
  - Drug intolerance [Unknown]

NARRATIVE: CASE EVENT DATE: 20190423
